FAERS Safety Report 9447654 (Version 1)
Quarter: 2013Q3

REPORT INFORMATION
  Report Type: Report from Study
  Country: US (occurrence: US)
  Receive Date: 20130808
  Receipt Date: 20130808
  Transmission Date: 20140515
  Serious: Yes (Congenital Anomaly)
  Sender: FDA-Public Use
  Company Number: US-UCBSA-094752

PATIENT
  Age: 0 Day
  Sex: Female
  Weight: 3.9 kg

DRUGS (12)
  1. CIMZIA [Suspect]
     Indication: CROHN^S DISEASE
     Dosage: DOSE: UNKNOWN
     Route: 064
  2. CIMZIA [Suspect]
     Indication: CROHN^S DISEASE
     Dosage: DOSE: UNKNOWN
     Route: 063
  3. ALBUTEROL [Concomitant]
     Route: 064
  4. ALBUTEROL [Concomitant]
     Route: 063
  5. AMBIEN [Concomitant]
     Route: 064
  6. AMBIEN [Concomitant]
     Route: 063
  7. IBUPROFEN [Concomitant]
     Route: 064
  8. IBUPROFEN [Concomitant]
     Route: 063
  9. REMICADE [Concomitant]
     Indication: CROHN^S DISEASE
     Route: 064
  10. REMICADE [Concomitant]
     Indication: CROHN^S DISEASE
     Route: 063
  11. VITAMIN B-12 [Concomitant]
     Route: 064
  12. VITAMIN B-12 [Concomitant]
     Route: 063

REACTIONS (3)
  - Talipes [Unknown]
  - Foetal exposure during pregnancy [Recovered/Resolved]
  - Exposure during breast feeding [Recovered/Resolved]
